FAERS Safety Report 6077105-5 (Version None)
Quarter: 2009Q1

REPORT INFORMATION
  Report Type: 
  Country: None (occurrence: None)
  Receive Date: 20090210
  Receipt Date: 20090202
  Transmission Date: 20090719
  Serious: Yes (Hospitalization)
  Sender: FDA-Public Use
  Company Number: 2009SP001520

PATIENT
  Age: 57 Year
  Sex: Female
  Weight: 68 kg

DRUGS (7)
  1. PEG-INTRON [Suspect]
     Indication: HEPATITIS C
     Dosage: 50 MCG;QW; SC, 40 MCG;QW; SC
     Route: 058
     Dates: start: 20070920, end: 20080822
  2. PEG-INTRON [Suspect]
     Indication: HEPATITIS C
     Dosage: 50 MCG;QW; SC, 40 MCG;QW; SC
     Route: 058
     Dates: start: 20080829, end: 20081219
  3. REBETOL [Suspect]
     Indication: HEPATITIS C
     Dosage: 600 MG; QD; PO, 400 MG; QD; PO
     Route: 048
     Dates: start: 20070920, end: 20080828
  4. REBETOL [Suspect]
     Indication: HEPATITIS C
     Dosage: 600 MG; QD; PO, 400 MG; QD; PO
     Route: 048
     Dates: start: 20080829, end: 20081225
  5. ALDACTONE [Concomitant]
  6. PARIET [Concomitant]
  7. SHAKUYAKU-KANZO-TO [Concomitant]

REACTIONS (4)
  - DYSGEUSIA [None]
  - NIGHT SWEATS [None]
  - PANNICULITIS [None]
  - PYREXIA [None]
